FAERS Safety Report 4530388-2 (Version None)
Quarter: 2004Q4

REPORT INFORMATION
  Report Type: 
  Country: None (occurrence: None)
  Receive Date: 20041215
  Receipt Date: 20041202
  Transmission Date: 20050328
  Serious: Yes (Death, Hospitalization)
  Sender: FDA-Public Use
  Company Number: ES-2004-035813

PATIENT
  Age: 65 Year
  Sex: Male

DRUGS (2)
  1. ULTRAVIST 370 [Suspect]
     Indication: COMPUTERISED TOMOGRAM
     Dosage: 120 ML, INTRAVENOUS
     Route: 042
     Dates: start: 20041103, end: 20041103
  2. SINTROM [Concomitant]

REACTIONS (7)
  - ACUTE RESPIRATORY DISTRESS SYNDROME [None]
  - ANOXIC ENCEPHALOPATHY [None]
  - CARDIO-RESPIRATORY ARREST [None]
  - IATROGENIC INJURY [None]
  - PATHOGEN RESISTANCE [None]
  - PNEUMOTHORAX TRAUMATIC [None]
  - SEPTIC SHOCK [None]
